FAERS Safety Report 8618708-0 (Version None)
Quarter: 2012Q3

REPORT INFORMATION
  Report Type: 
  Country: None (occurrence: None)
  Receive Date: 20120824
  Receipt Date: 20120816
  Transmission Date: 20120928
  Serious: Yes (Other)
  Sender: FDA-Public Use
  Company Number: US-JNJFOC-20120809993

PATIENT
  Age: 71 Year
  Sex: Male
  Weight: 81.65 kg

DRUGS (1)
  1. ZYTIGA [Suspect]
     Indication: PROSTATE CANCER
     Route: 048
     Dates: start: 20111011, end: 20120530

REACTIONS (3)
  - OEDEMA PERIPHERAL [None]
  - ABDOMINAL DISTENSION [None]
  - PROSTATIC SPECIFIC ANTIGEN INCREASED [None]
